FAERS Safety Report 9447235 (Version 1)
Quarter: 2013Q3

REPORT INFORMATION
  Report Type: Spontaneous
  Country: US (occurrence: US)
  Receive Date: 20130808
  Receipt Date: 20130808
  Transmission Date: 20140515
  Serious: Yes (Hospitalization)
  Sender: FDA-Public Use
  Company Number: US-AMGEN-USASP2013054876

PATIENT
  Age: 60 Year
  Sex: Male
  Weight: 95.6 kg

DRUGS (16)
  1. PROCRIT [Suspect]
     Indication: PROPHYLAXIS
     Dosage: 40000 IU, QWK
     Route: 065
     Dates: start: 20130110
  2. RIBAVIRIN [Suspect]
     Indication: HEPATITIS C
     Dosage: 400 MG, BID
     Route: 048
     Dates: start: 20130115
  3. PEGASYS [Suspect]
     Indication: HEPATITIS C
     Dosage: 90 MUG, QWK
     Route: 058
     Dates: start: 20130702
  4. TELAPREVIR [Suspect]
     Indication: HEPATITIS C
     Dosage: 1125 MG, BID
     Route: 048
     Dates: start: 20120925, end: 20121217
  5. CYCLOSPORIN [Concomitant]
     Indication: HEPATITIS C
     Dosage: 50 MG, QD QPM
     Route: 048
     Dates: start: 20121220
  6. CYCLOSPORIN [Concomitant]
     Dosage: 75 MG, QD QAM
     Route: 048
     Dates: start: 20121220
  7. CARVEDIOL [Concomitant]
     Indication: HYPERTENSION
     Dosage: 6.25 MG, BID
     Dates: start: 20130420
  8. OMEPRAZOLE [Concomitant]
     Indication: DYSPEPSIA
     Dosage: UNK UNK, BID
     Dates: start: 20130420
  9. ADVAIR [Concomitant]
     Indication: INFLUENZA LIKE ILLNESS
     Dosage: UNK UNK, AS NECESSARY
     Dates: start: 20121226
  10. BENADRYL                           /00000402/ [Concomitant]
     Indication: NASOPHARYNGITIS
     Dosage: UNK UNK, AS NECESSARY
     Dates: start: 20121105
  11. METFORMIN [Concomitant]
     Indication: DIABETES MELLITUS
     Dosage: 500 MG, QD
     Dates: start: 20130605
  12. JANUVIA [Concomitant]
     Indication: DIABETES MELLITUS
     Dosage: 100 MG, QD
     Dates: start: 20110315
  13. TRIAMCINOLONE [Concomitant]
     Indication: RASH
     Dosage: UNK UNK, AS NECESSARY
     Dates: start: 20121004
  14. MULTIVITAMINS [Concomitant]
     Indication: VITAMIN SUPPLEMENTATION
     Dosage: UNK UNK, QD
     Dates: start: 20110315
  15. OMEGA 3                            /01334101/ [Concomitant]
     Indication: VITAMIN SUPPLEMENTATION
     Dosage: 1200 MG, QD
     Dates: start: 20120524
  16. MAGNESIUM OXIDE [Concomitant]
     Indication: VITAMIN SUPPLEMENTATION
     Dosage: 800 MG, QD
     Dates: start: 20121001

REACTIONS (2)
  - Pneumonia [Not Recovered/Not Resolved]
  - Lower respiratory tract infection [Unknown]
